FAERS Safety Report 8139662-4 (Version None)
Quarter: 2012Q1

REPORT INFORMATION
  Report Type: 
  Country: None (occurrence: None)
  Receive Date: 20120215
  Receipt Date: 20120210
  Transmission Date: 20120608
  Serious: Yes (Congenital Anomaly, Other)
  Sender: FDA-Public Use
  Company Number: US-PFIZER INC-2011288394

PATIENT
  Sex: Female
  Weight: 3.2 kg

DRUGS (9)
  1. ZOLOFT [Suspect]
     Dosage: 100 MG, TAKE ONE, THREE TIMES DAILY
     Route: 064
     Dates: start: 20020530
  2. ZOLOFT [Suspect]
     Indication: ANXIETY
     Dosage: UNK
     Route: 064
     Dates: start: 20020326
  3. ZOLOFT [Suspect]
     Indication: DEPRESSION
     Dosage: 25 MG, 1X/DAY, FOR ONE WEEK
     Route: 064
     Dates: start: 20020329
  4. ZOLOFT [Suspect]
     Dosage: 100 MG, 1X/DAY
     Route: 064
     Dates: start: 20020730
  5. ZOLOFT [Suspect]
     Dosage: 50 MG, 1X/DAY
     Route: 064
     Dates: start: 20020401
  6. ZOLOFT [Suspect]
     Dosage: ONCE A DAY
     Route: 064
     Dates: start: 20030415
  7. SEREVENT [Concomitant]
     Indication: ASTHMA
     Dosage: TWICE DAILY
  8. ALBUTEROL [Concomitant]
     Indication: ASTHMA
     Dosage: UNK
  9. MULTI-VITAMINS [Concomitant]
     Dosage: UNK

REACTIONS (5)
  - VENTRICULAR SEPTAL DEFECT [None]
  - ATRIOVENTRICULAR SEPTAL DEFECT [None]
  - DILATATION VENTRICULAR [None]
  - ATRIAL SEPTAL DEFECT [None]
  - MATERNAL EXPOSURE TIMING UNSPECIFIED [None]
